FAERS Safety Report 21010545 (Version 1)
Quarter: 2022Q2

REPORT INFORMATION
  Report Type: Spontaneous
  Country: GB (occurrence: None)
  Receive Date: 20220627
  Receipt Date: 20220627
  Transmission Date: 20220720
  Serious: Yes (Other)
  Sender: FDA-Public Use
  Company Number: GB-ROCHE-3121387

PATIENT

DRUGS (1)
  1. OBINUTUZUMAB [Suspect]
     Active Substance: OBINUTUZUMAB
     Indication: Non-Hodgkin^s lymphoma
     Route: 042

REACTIONS (4)
  - Cold sweat [Unknown]
  - Chest pain [Unknown]
  - Dependence on oxygen therapy [Unknown]
  - Vomiting [Unknown]
